FAERS Safety Report 5372825-X (Version None)
Quarter: 2007Q2

REPORT INFORMATION
  Report Type: 
  Country: None (occurrence: None)
  Receive Date: 20070627
  Receipt Date: 20070615
  Transmission Date: 20071010
  Serious: Yes (Life-Threatening, Hospitalization, Disabling)
  Sender: FDA-Public Use
  Company Number: JP-PFIZER INC-2007049918

PATIENT
  Age: 57 Year
  Sex: Male

DRUGS (7)
  1. GABAPEN [Suspect]
     Indication: EPILEPSY
     Dosage: DAILY DOSE:1800MG
     Route: 048
     Dates: start: 20070424, end: 20070521
  2. TEGRETOL [Concomitant]
     Route: 048
  3. PHENOBARBITAL TAB [Concomitant]
  4. DEPAKENE [Concomitant]
     Route: 048
  5. SOLANAX [Concomitant]
     Route: 048
  6. TERNELIN [Concomitant]
     Route: 048
     Dates: start: 20070201, end: 20070526
  7. TRYPTANOL [Concomitant]
     Route: 048

REACTIONS (4)
  - ANURIA [None]
  - EOSINOPHIL COUNT INCREASED [None]
  - PYREXIA [None]
  - RENAL IMPAIRMENT [None]
